FAERS Safety Report 24567024 (Version 1)
Quarter: 2024Q4

REPORT INFORMATION
  Report Type: Spontaneous
  Country: IT (occurrence: IT)
  Receive Date: 20241030
  Receipt Date: 20241030
  Transmission Date: 20250114
  Serious: Yes (Other)
  Sender: NOVARTIS
  Company Number: IT-002147023-NVSC2024IT210466

PATIENT

DRUGS (1)
  1. LUTETIUM OXODOTREOTIDE LU-177 [Suspect]
     Active Substance: LUTETIUM OXODOTREOTIDE LU-177
     Indication: Meningioma
     Dosage: 5 CYCLE
     Route: 065

REACTIONS (3)
  - Platelet toxicity [Unknown]
  - Product use in unapproved indication [Unknown]
  - Product use issue [Unknown]
